FAERS Safety Report 7561074-2 (Version None)
Quarter: 2011Q2

REPORT INFORMATION
  Report Type: 
  Country: None (occurrence: None)
  Receive Date: 20110621
  Receipt Date: 20110610
  Transmission Date: 20111010
  Serious: Yes (Hospitalization, Other)
  Sender: FDA-Public Use
  Company Number: JP-UCBSA-009753

PATIENT
  Sex: Female

DRUGS (13)
  1. REBAMIPIDE [Concomitant]
  2. CERTOLIZUMAB PEGOL [Suspect]
     Route: 058
     Dates: end: 20110401
  3. BETAMETHASONE_D-CHLORPHENIRAMINE MALEATE [Concomitant]
     Dosage: 2 TABLETS
  4. BETAMETHASONE_D-CHLORPHENIRAMINE MALEATE [Concomitant]
     Dosage: 2 TABLETS
  5. PREGABALIN [Concomitant]
     Dates: start: 20110304
  6. INDOMETHACIN SODIUM [Concomitant]
     Dosage: ADEQUATE DOSE AS NEEDED
     Dates: start: 20090918, end: 20101231
  7. BREDININ [Suspect]
     Indication: RHEUMATOID ARTHRITIS
     Route: 048
     Dates: start: 20110304, end: 20110415
  8. LANSOPRAZOLE [Concomitant]
     Dates: start: 20100901
  9. KETOPROFEN [Concomitant]
     Dosage: ADEQUATE DOSE AS NEEDED
     Dates: start: 20090724, end: 20100819
  10. CERTOLIZUMAB PEGOL [Suspect]
     Indication: RHEUMATOID ARTHRITIS
     Dosage: 275-08-003
     Route: 058
     Dates: start: 20090820, end: 20090101
  11. CERTOLIZUMAB PEGOL [Suspect]
     Route: 058
     Dates: start: 20091211
  12. DICLOFENAC SODIUM [Concomitant]
     Dates: start: 20090707
  13. ATORVASTATIN CALCIUM [Concomitant]
     Dates: start: 20101210

REACTIONS (3)
  - LUMBAR SPINAL STENOSIS [None]
  - INTERVERTEBRAL DISC PROTRUSION [None]
  - PNEUMONIA BACTERIAL [None]
